FAERS Safety Report 19223191 (Version 1)
Quarter: 2021Q2

REPORT INFORMATION
  Report Type: Spontaneous
  Country: US (occurrence: US)
  Receive Date: 20210505
  Receipt Date: 20210505
  Transmission Date: 20210717
  Serious: No
  Sender: FDA-Public Use
  Company Number: US-ROCHE-2729226

PATIENT
  Age: 85 Year
  Sex: Male

DRUGS (1)
  1. ESBRIET [Suspect]
     Active Substance: PIRFENIDONE
     Indication: IDIOPATHIC PULMONARY FIBROSIS
     Dosage: PATIENT TAKING 801MG TAB THREE TIMES PER DAY WITH FOOD
     Route: 048

REACTIONS (3)
  - Weight decreased [Unknown]
  - Dizziness [Unknown]
  - Dyspnoea [Unknown]
